FAERS Safety Report 5029497-3 (Version None)
Quarter: 2006Q2

REPORT INFORMATION
  Report Type: 
  Country: None (occurrence: None)
  Receive Date: 20060620
  Receipt Date: 20041004
  Transmission Date: 20061013
  Serious: No
  Sender: FDA-Public Use
  Company Number: US-GLAXOSMITHKLINE-A0528396A

PATIENT
  Age: 50 Year
  Sex: Female
  Weight: 59.1 kg

DRUGS (2)
  1. ZYBAN [Suspect]
     Dosage: 150MG UNKNOWN
     Route: 048
     Dates: start: 20041230, end: 20050130
  2. WELLBUTRIN [Suspect]
     Route: 048

REACTIONS (2)
  - DRUG INEFFECTIVE [None]
  - SMOKER [None]
